FAERS Safety Report 10606800 (Version 2)
Quarter: 2014Q4

REPORT INFORMATION
  Report Type: Report from Study
  Country: JP (occurrence: JP)
  Receive Date: 20141125
  Receipt Date: 20141203
  Transmission Date: 20150529
  Serious: Yes (Death)
  Sender: FDA-Public Use
  Company Number: JP-SA-2014SA161633

PATIENT
  Age: 14 Year
  Sex: Female

DRUGS (10)
  1. ETOPOSIDE. [Concomitant]
     Active Substance: ETOPOSIDE
     Dosage: FOR 1-2 WEEKS.
  2. FLUDARABINE PHOSPHATE. [Suspect]
     Active Substance: FLUDARABINE PHOSPHATE
     Indication: BONE MARROW CONDITIONING REGIMEN
     Dosage: 30 MG/M2/D X 6 D
     Route: 065
  3. TACROLIMUS. [Concomitant]
     Active Substance: TACROLIMUS
  4. CYCLOPHOSPHAMIDE. [Suspect]
     Active Substance: CYCLOPHOSPHAMIDE
     Indication: IMMUNOSUPPRESSION
     Dosage: RECEIVED ON DAY 3
     Route: 065
  5. MESNA. [Concomitant]
     Active Substance: MESNA
  6. MELPHALAN [Suspect]
     Active Substance: MELPHALAN
     Indication: BONE MARROW CONDITIONING REGIMEN
     Dosage: 140-210 MG/M2
     Route: 065
  7. CYTOSINE ARABINOSIDE [Concomitant]
     Active Substance: CYTARABINE
     Dosage: FOR 1-2 WEEKS.
  8. METHYLPREDNISOLONE. [Concomitant]
     Active Substance: METHYLPREDNISOLONE
  9. GRANULOCYTE COLONY STIMULATING FACTOR [Concomitant]
     Active Substance: GRANULOCYTE COLONY-STIMULATING FACTOR NOS
     Dosage: WAS STARTED ON DAY 5.
  10. ACYCLOVIR. [Concomitant]
     Active Substance: ACYCLOVIR

REACTIONS (1)
  - Multi-organ failure [Fatal]
